FAERS Safety Report 5485551-3 (Version None)
Quarter: 2007Q4

REPORT INFORMATION
  Report Type: 
  Country: None (occurrence: None)
  Receive Date: 20071011
  Receipt Date: 20071011
  Transmission Date: 20080405
  Serious: Yes (Hospitalization)
  Sender: FDA-Public Use
  Company Number: None

PATIENT
  Sex: Female
  Weight: 97 kg

DRUGS (2)
  1. CYCLOPHOSPHAMIDE [Suspect]
     Dosage: 1200 MG
  2. DOXORUBICIN HYDROCHLORIDE [Suspect]
     Dosage: 120 MG

REACTIONS (7)
  - ANAEMIA [None]
  - ASTHENIA [None]
  - DEHYDRATION [None]
  - DIVERTICULITIS [None]
  - IRRITABLE BOWEL SYNDROME [None]
  - NAUSEA [None]
  - VOMITING [None]
